FAERS Safety Report 6303565-8 (Version None)
Quarter: 2009Q3

REPORT INFORMATION
  Report Type: 
  Country: None (occurrence: None)
  Receive Date: 20090807
  Receipt Date: 20090807
  Transmission Date: 20100115
  Serious: Yes (Life-Threatening, Hospitalization, Other)
  Sender: FDA-Public Use
  Company Number: None

PATIENT
  Age: 29 Year
  Sex: Male
  Weight: 72.5755 kg

DRUGS (1)
  1. METHIMAZOLE [Suspect]
     Indication: BASEDOW'S DISEASE
     Dosage: 10 MG TWICE DAILY PO
     Route: 048
     Dates: start: 20090518, end: 20090608

REACTIONS (4)
  - AGRANULOCYTOSIS [None]
  - CARDIOVASCULAR DISORDER [None]
  - NEUTROPENIA [None]
  - THYROTOXIC CRISIS [None]
